FAERS Safety Report 4633577-1 (Version None)
Quarter: 2005Q2

REPORT INFORMATION
  Report Type: 
  Country: None (occurrence: None)
  Receive Date: 20050411
  Receipt Date: 20050411
  Transmission Date: 20051028
  Serious: Yes (Hospitalization)
  Sender: FDA-Public Use
  Company Number: None

PATIENT
  Sex: Male
  Weight: 20 kg

DRUGS (2)
  1. CEFTRIAXONE [Suspect]
     Indication: LOBAR PNEUMONIA
     Dosage: 1.5 GRAM  IV  Q24HR
     Route: 042
     Dates: start: 20050304, end: 20050323
  2. VANCOMYCIN [Suspect]
     Dosage: 265MG  IV  Q8HR
     Route: 042

REACTIONS (4)
  - HAEMOLYTIC ANAEMIA [None]
  - PHARYNGOLARYNGEAL PAIN [None]
  - PYREXIA [None]
  - VOMITING [None]
